FAERS Safety Report 7528346-9 (Version None)
Quarter: 2011Q2

REPORT INFORMATION
  Report Type: 
  Country: None (occurrence: None)
  Receive Date: 20110607
  Receipt Date: 20100624
  Transmission Date: 20111010
  Serious: No
  Sender: FDA-Public Use
  Company Number: US-ASTRAZENECA-2010SE30948

PATIENT
  Sex: Male

DRUGS (3)
  1. ANTIHYPERTENSIVES [Concomitant]
  2. PRILOSEC OTC [Suspect]
     Route: 048
     Dates: start: 20100618
  3. PROSTATE MED [Concomitant]

REACTIONS (3)
  - FEELING ABNORMAL [None]
  - ANXIETY [None]
  - CONFUSIONAL STATE [None]
